FAERS Safety Report 11997566 (Version 2)
Quarter: 2016Q2

REPORT INFORMATION
  Report Type: Spontaneous
  Country: AT (occurrence: AT)
  Receive Date: 20160203
  Receipt Date: 20160608
  Transmission Date: 20160815
  Serious: Yes (Hospitalization, Other)
  Sender: FDA-Public Use
  Company Number: AT-ELI_LILLY_AND_COMPANY-AT201601009249

PATIENT
  Age: 73 Year
  Sex: Female

DRUGS (30)
  1. RIVOTRIL [Suspect]
     Active Substance: CLONAZEPAM
     Dosage: 2.75 MG, UNKNOWN
     Route: 065
     Dates: start: 20140218, end: 20140218
  2. RIVOTRIL [Suspect]
     Active Substance: CLONAZEPAM
     Dosage: 2.5 MG, UNKNOWN
     Route: 065
     Dates: start: 20140219, end: 20140224
  3. LYRICA [Suspect]
     Active Substance: PREGABALIN
     Dosage: 125 MG, UNKNOWN
     Route: 065
     Dates: start: 20140225, end: 20140225
  4. TRESLEEN [Suspect]
     Active Substance: SERTRALINE HYDROCHLORIDE
     Indication: PRODUCT USED FOR UNKNOWN INDICATION
     Dosage: 50 MG, UNKNOWN
     Route: 065
     Dates: start: 20140122
  5. SEROQUEL [Concomitant]
     Active Substance: QUETIAPINE FUMARATE
     Dosage: 25 MG, UNKNOWN
     Route: 065
     Dates: start: 20140129, end: 20140129
  6. OXAZEPAM. [Concomitant]
     Active Substance: OXAZEPAM
     Dosage: 15 MG, UNKNOWN
     Route: 065
     Dates: start: 20140201, end: 20140201
  7. LYRICA [Suspect]
     Active Substance: PREGABALIN
     Dosage: 100 MG, UNKNOWN
     Route: 065
  8. SEROQUEL [Concomitant]
     Active Substance: QUETIAPINE FUMARATE
     Dosage: 50 MG, UNKNOWN
     Route: 065
     Dates: start: 20140128, end: 20140128
  9. RIVOTRIL [Suspect]
     Active Substance: CLONAZEPAM
     Indication: PRODUCT USED FOR UNKNOWN INDICATION
     Dosage: 1 MG, UNKNOWN
     Route: 065
     Dates: start: 20140123, end: 20140128
  10. RIVOTRIL [Suspect]
     Active Substance: CLONAZEPAM
     Dosage: 1.5 MG, UNKNOWN
     Route: 065
     Dates: start: 20140129, end: 20140129
  11. SEROQUEL [Concomitant]
     Active Substance: QUETIAPINE FUMARATE
     Indication: PRODUCT USED FOR UNKNOWN INDICATION
     Dosage: 100 MG, UNKNOWN
     Route: 065
     Dates: end: 20140127
  12. OXAZEPAM. [Concomitant]
     Active Substance: OXAZEPAM
     Dosage: 45 MG, UNKNOWN
     Route: 065
     Dates: start: 20140128, end: 20140128
  13. OXAZEPAM. [Concomitant]
     Active Substance: OXAZEPAM
     Dosage: 22.5 MG, UNKNOWN
     Route: 065
     Dates: start: 20140131, end: 20140131
  14. RIVOTRIL [Suspect]
     Active Substance: CLONAZEPAM
     Dosage: 2.75 MG, UNKNOWN
     Route: 065
     Dates: start: 20140225, end: 20140225
  15. LYRICA [Suspect]
     Active Substance: PREGABALIN
     Dosage: 75 MG, UNKNOWN
     Route: 065
     Dates: start: 20140207, end: 20140224
  16. BURONIL [Concomitant]
     Active Substance: MELPERONE HYDROCHLORIDE
     Dosage: 50 MG, UNKNOWN
     Route: 065
     Dates: start: 20140127, end: 20140127
  17. OXAZEPAM. [Concomitant]
     Active Substance: OXAZEPAM
     Dosage: 37.5 MG, UNKNOWN
     Route: 065
     Dates: start: 20140129, end: 20140129
  18. LYRICA [Suspect]
     Active Substance: PREGABALIN
     Indication: PRODUCT USED FOR UNKNOWN INDICATION
     Dosage: 50 MG, UNKNOWN
     Route: 065
     Dates: start: 20140206, end: 20140206
  19. BURONIL [Concomitant]
     Active Substance: MELPERONE HYDROCHLORIDE
     Indication: PRODUCT USED FOR UNKNOWN INDICATION
     Dosage: 25 MG, UNKNOWN
     Route: 065
     Dates: start: 20140123, end: 20140126
  20. BURONIL [Concomitant]
     Active Substance: MELPERONE HYDROCHLORIDE
     Dosage: 75 MG, UNKNOWN
     Route: 065
     Dates: start: 20140128, end: 20140205
  21. BURONIL [Concomitant]
     Active Substance: MELPERONE HYDROCHLORIDE
     Dosage: 50 MG, UNKNOWN
     Route: 065
     Dates: start: 20140206, end: 20140206
  22. OXAZEPAM. [Concomitant]
     Active Substance: OXAZEPAM
     Dosage: 30 MG, UNKNOWN
     Route: 065
     Dates: start: 20140130, end: 20140130
  23. ZYPREXA [Suspect]
     Active Substance: OLANZAPINE
     Indication: PRODUCT USED FOR UNKNOWN INDICATION
     Dosage: 2.5 MG, UNKNOWN
     Route: 065
     Dates: start: 20140121
  24. RIVOTRIL [Suspect]
     Active Substance: CLONAZEPAM
     Dosage: 2.25 MG, UNKNOWN
     Route: 065
     Dates: start: 20140227, end: 20140310
  25. RIVOTRIL [Suspect]
     Active Substance: CLONAZEPAM
     Dosage: 50 MG, UNKNOWN
     Route: 065
     Dates: start: 20140310
  26. RIVOTRIL [Suspect]
     Active Substance: CLONAZEPAM
     Dosage: 2 MG, UNKNOWN
     Route: 065
     Dates: start: 20140131, end: 20140203
  27. ZOLDEM [Suspect]
     Active Substance: ZOLPIDEM TARTRATE
     Indication: PRODUCT USED FOR UNKNOWN INDICATION
     Dosage: 10 MG, UNKNOWN
     Route: 065
     Dates: start: 20140121
  28. SEROQUEL [Concomitant]
     Active Substance: QUETIAPINE FUMARATE
     Indication: PRODUCT USED FOR UNKNOWN INDICATION
     Dosage: 200 MG, UNKNOWN
     Route: 065
     Dates: end: 20140131
  29. OXAZEPAM. [Concomitant]
     Active Substance: OXAZEPAM
     Indication: PRODUCT USED FOR UNKNOWN INDICATION
     Dosage: 60 MG, UNKNOWN
     Route: 065
     Dates: end: 20140127
  30. OXAZEPAM. [Concomitant]
     Active Substance: OXAZEPAM
     Dosage: 7.5 MG, UNKNOWN
     Route: 065
     Dates: start: 20140202, end: 20140202

REACTIONS (5)
  - Head injury [Unknown]
  - Fatigue [Recovered/Resolved]
  - Muscular weakness [Recovered/Resolved]
  - Fall [Recovered/Resolved]
  - Scapula fracture [Unknown]

NARRATIVE: CASE EVENT DATE: 20140226
